FAERS Safety Report 24784203 (Version 1)
Quarter: 2024Q4

REPORT INFORMATION
  Report Type: Spontaneous
  Country: US (occurrence: None)
  Receive Date: 20241227
  Receipt Date: 20241227
  Transmission Date: 20250114
  Serious: Yes (Hospitalization)
  Sender: Public
  Company Number: None

PATIENT
  Age: 66 Year
  Sex: Female

DRUGS (2)
  1. LENALIDOMIDE [Suspect]
     Active Substance: LENALIDOMIDE
     Indication: Neoplasm
     Dosage: OTHER FREQUENCY : 21 DAYS ON THEN 7 DAYS OFF;?
     Route: 048
     Dates: start: 202410
  2. LENALIDOMIDE [Suspect]
     Active Substance: LENALIDOMIDE
     Indication: Plasma cell myeloma

REACTIONS (2)
  - Dyspnoea [None]
  - Chest tube insertion [None]

NARRATIVE: CASE EVENT DATE: 20241214
